FAERS Safety Report 6866002-0 (Version None)
Quarter: 2010Q3

REPORT INFORMATION
  Report Type: 
  Country: None (occurrence: None)
  Receive Date: 20100722
  Receipt Date: 20100713
  Transmission Date: 20110219
  Serious: Yes (Other)
  Sender: FDA-Public Use
  Company Number: US-WYE-H16187610

PATIENT
  Sex: Female
  Weight: 77.18 kg

DRUGS (1)
  1. EFFEXOR XR [Suspect]
     Indication: DEPRESSION

REACTIONS (2)
  - ARTERIAL OCCLUSIVE DISEASE [None]
  - DIZZINESS [None]
